FAERS Safety Report 9310703 (Version 1)
Quarter: 2013Q2

REPORT INFORMATION
  Report Type: Spontaneous
  Country: US (occurrence: US)
  Receive Date: 20130527
  Receipt Date: 20130527
  Transmission Date: 20140414
  Serious: No
  Sender: FDA-Public Use
  Company Number: US-009507513-1304USA013398

PATIENT
  Age: 23 Month
  Sex: Female
  Weight: 11.34 kg

DRUGS (1)
  1. CLARITIN ORAL SOLUTION [Suspect]
     Indication: RHINORRHOEA
     Dosage: 8.75 MG, ONCE
     Route: 048
     Dates: start: 20130328

REACTIONS (3)
  - Overdose [Recovering/Resolving]
  - Drug administered to patient of inappropriate age [Unknown]
  - Off label use [Unknown]
